FAERS Safety Report 6730813-2 (Version None)
Quarter: 2010Q2

REPORT INFORMATION
  Report Type: 
  Country: None (occurrence: None)
  Receive Date: 20100514
  Receipt Date: 20100506
  Transmission Date: 20101027
  Serious: Yes (Hospitalization)
  Sender: FDA-Public Use
  Company Number: 2010AL002712

PATIENT
  Age: 76 Year
  Sex: Male

DRUGS (4)
  1. DIAZEPAM TAB [Suspect]
     Indication: DRUG USE FOR UNKNOWN INDICATION
     Dates: end: 20091220
  2. ACETAMINOPHEN AND CODEINE PHOSPHATE ORAL SOLUTION USP [Suspect]
     Indication: DRUG USE FOR UNKNOWN INDICATION
     Dosage: 120 MG 12 MG PER 5 ML
     Route: 048
     Dates: end: 20091220
  3. IMOVANE [Concomitant]
  4. STILNOCT [Concomitant]

REACTIONS (2)
  - CONFUSIONAL STATE [None]
  - INCORRECT DOSE ADMINISTERED [None]
